FAERS Safety Report 5426248-5 (Version None)
Quarter: 2007Q3

REPORT INFORMATION
  Report Type: 
  Country: None (occurrence: None)
  Receive Date: 20070827
  Receipt Date: 20070820
  Transmission Date: 20080115
  Serious: Yes (Hospitalization)
  Sender: FDA-Public Use
  Company Number: FR-ASTRAZENECA-2007CG01197

PATIENT
  Age: 19008 Day
  Sex: Male

DRUGS (4)
  1. CRESTOR [Suspect]
     Indication: HYPERCHOLESTEROLAEMIA
     Route: 048
     Dates: end: 20070707
  2. NICOPATCH [Suspect]
     Indication: EX-SMOKER
     Route: 062
     Dates: start: 20070626, end: 20070704
  3. KARDEGIC [Suspect]
     Route: 048
     Dates: start: 20070626, end: 20070704
  4. DAKTARIN [Concomitant]
     Route: 061

REACTIONS (4)
  - APPLICATION SITE PRURITUS [None]
  - EOSINOPHILIA [None]
  - ERYTHEMA MULTIFORME [None]
  - SKIN REACTION [None]
